FAERS Safety Report 10796625 (Version 1)
Quarter: 2015Q1

REPORT INFORMATION
  Report Type: Spontaneous
  Country: BR (occurrence: BR)
  Receive Date: 20150216
  Receipt Date: 20150216
  Transmission Date: 20150721
  Serious: Yes (Hospitalization, Other)
  Sender: FDA-Public Use
  Company Number: BR-ELI_LILLY_AND_COMPANY-BR201502004631

PATIENT
  Age: 62 Year
  Sex: Female
  Weight: 64 kg

DRUGS (9)
  1. AMLODIPINE W/LOSARTAN POTASSIUM [Concomitant]
     Dosage: UNK UNK, UNKNOWN
     Route: 065
  2. CLONAZEPAM. [Concomitant]
     Active Substance: CLONAZEPAM
     Dosage: UNK UNK, UNKNOWN
     Route: 065
  3. ACETYLSALICYLIC ACID [Concomitant]
     Active Substance: ASPIRIN
     Dosage: UNK UNK, UNKNOWN
     Route: 065
  4. ROSUVASTATIN [Concomitant]
     Active Substance: ROSUVASTATIN
     Dosage: UNK UNK, UNKNOWN
     Route: 065
  5. PRASUGREL HYDROCHLORIDE [Suspect]
     Active Substance: PRASUGREL HYDROCHLORIDE
     Indication: ANTIPLATELET THERAPY
     Dosage: 10 MG, QOD
     Route: 048
     Dates: start: 2010, end: 20150125
  6. ESOMEPRAZOLE [Concomitant]
     Active Substance: ESOMEPRAZOLE
     Dosage: UNK UNK, UNKNOWN
     Route: 065
  7. GINKGO BILOBA [Concomitant]
     Active Substance: GINKGO
     Dosage: UNK UNK, UNKNOWN
     Route: 065
  8. PRASUGREL HYDROCHLORIDE [Suspect]
     Active Substance: PRASUGREL HYDROCHLORIDE
     Dosage: 10 MG, QD
     Route: 048
     Dates: start: 20150126
  9. CALCIUM [Concomitant]
     Active Substance: CALCIUM
     Dosage: UNK UNK, UNKNOWN
     Route: 065

REACTIONS (5)
  - Angina unstable [Recovered/Resolved]
  - Palpitations [Unknown]
  - Venous occlusion [Not Recovered/Not Resolved]
  - Infarction [Recovered/Resolved]
  - Dizziness [Unknown]

NARRATIVE: CASE EVENT DATE: 2014
